FAERS Safety Report 7671471-2 (Version None)
Quarter: 2011Q3

REPORT INFORMATION
  Report Type: 
  Country: None (occurrence: None)
  Receive Date: 20110809
  Receipt Date: 20110805
  Transmission Date: 20111222
  Serious: Yes (Death, Hospitalization)
  Sender: FDA-Public Use
  Company Number: BR-ABBOTT-11P-020-0844415-00

PATIENT
  Sex: Female
  Weight: 56 kg

DRUGS (2)
  1. HUMIRA [Suspect]
     Indication: RHEUMATOID ARTHRITIS
     Dosage: 1 APPLICATION (40MG)
     Route: 058
     Dates: start: 20110717, end: 20110717
  2. METFORMIN HCL [Concomitant]
     Indication: DIABETES MELLITUS
     Route: 048
     Dates: start: 20100801

REACTIONS (4)
  - SEPTIC SHOCK [None]
  - PYREXIA [None]
  - DYSPNOEA [None]
  - PAIN [None]
